FAERS Safety Report 20758551 (Version 1)
Quarter: 2022Q2

REPORT INFORMATION
  Report Type: Spontaneous
  Country: US (occurrence: US)
  Receive Date: 20220427
  Receipt Date: 20220427
  Transmission Date: 20220720
  Serious: Yes (Other)
  Sender: FDA-Public Use
  Company Number: US-TAKEDA-2022TUS026442

PATIENT
  Sex: Male
  Weight: 109 kg

DRUGS (1)
  1. GAMMAGARD LIQUID [Suspect]
     Active Substance: HUMAN IMMUNOGLOBULIN G
     Indication: Chronic inflammatory demyelinating polyradiculoneuropathy
     Dosage: 110 GRAM, Q4WEEKS
     Route: 042
     Dates: start: 20201027

REACTIONS (3)
  - Vein rupture [Unknown]
  - Poor venous access [Unknown]
  - Product temperature excursion issue [Unknown]
